FAERS Safety Report 7765469-3 (Version None)
Quarter: 2011Q3

REPORT INFORMATION
  Report Type: 
  Country: None (occurrence: None)
  Receive Date: 20110906
  Receipt Date: 20110718
  Transmission Date: 20111222
  Serious: No
  Sender: FDA-Public Use
  Company Number: 201104086

PATIENT
  Age: 69 Year
  Sex: Male

DRUGS (9)
  1. LIDOCAINE [Suspect]
     Dosage: 2 IN 1 D, INJECTION
     Dates: start: 20110316, end: 20110316
  2. MARCAINE [Suspect]
     Dosage: 1 IN 1 D,INJECTION
     Dates: start: 20110316, end: 20110316
  3. SODIUM BICARBONATE [Suspect]
     Dosage: 1 IN 1 D,INJECTION
     Dates: start: 20110316, end: 20110316
  4. LOPRESSOR [Concomitant]
  5. PROBENECID [Concomitant]
  6. METFORMIN HCL [Concomitant]
  7. ASPIRIN [Concomitant]
  8. CETIRIZINE [Concomitant]
  9. XIAFLEX [Suspect]
     Indication: DUPUYTREN'S CONTRACTURE
     Dosage: 0.58 MG, 1 IN 1 D, INTRALESIONAL
     Route: 026
     Dates: start: 20110315, end: 20110315

REACTIONS (6)
  - LACERATION [None]
  - HAEMORRHAGE SUBCUTANEOUS [None]
  - BLISTER [None]
  - PAIN [None]
  - OEDEMA PERIPHERAL [None]
  - ECCHYMOSIS [None]
